FAERS Safety Report 9016717 (Version 1)
Quarter: 2013Q1

REPORT INFORMATION
  Report Type: Spontaneous
  Country: IE (occurrence: IE)
  Receive Date: 20130116
  Receipt Date: 20130116
  Transmission Date: 20140127
  Serious: Yes (Hospitalization)
  Sender: FDA-Public Use
  Company Number: IE-NOVOPROD-368295

PATIENT
  Age: 2 Year
  Sex: Female

DRUGS (4)
  1. NORDITROPIN SIMPLEXX [Suspect]
     Indication: GROWTH HORMONE DEFICIENCY
     Dosage: 0.30 MG, QD
     Route: 058
     Dates: start: 20121205
  2. ELTROXIN [Concomitant]
  3. MOVICOL                            /01625101/ [Concomitant]
  4. SALINE                             /00075401/ [Concomitant]

REACTIONS (1)
  - Pneumonia [Not Recovered/Not Resolved]
